FAERS Safety Report 11540593 (Version 1)
Quarter: 2015Q3

REPORT INFORMATION
  Report Type: Spontaneous
  Country: US (occurrence: US)
  Receive Date: 20150923
  Receipt Date: 20150923
  Transmission Date: 20151125
  Serious: No
  Sender: FDA-Public Use
  Company Number: US-BEH-2015050601

PATIENT
  Sex: Female
  Weight: 51.3 kg

DRUGS (8)
  1. PYRIDOSTIGMINE BROMIDE. [Concomitant]
     Active Substance: PYRIDOSTIGMINE BROMIDE
     Dosage: 3X 90 MG TID / 1X 60 DAILY
     Route: 048
  2. ACETAMINOPHEN 325 MG [Concomitant]
     Dosage: 325 MG UTD
     Route: 048
  3. SODIUM CHLORIDE. [Concomitant]
     Active Substance: SODIUM CHLORIDE
     Dosage: 0.3 MG PRN ANA
     Route: 030
  4. PREDNISONE. [Concomitant]
     Active Substance: PREDNISONE
     Dosage: 10 MG ALT W / 20 MG QOD
     Route: 048
  5. PRIVIGEN [Suspect]
     Active Substance: HUMAN IMMUNOGLOBULIN G
     Indication: MYASTHENIA GRAVIS
     Route: 042
  6. FAMOTIDINE 20 MG [Concomitant]
     Route: 048
  7. EPIPEN [Concomitant]
     Active Substance: EPINEPHRINE
     Dosage: 0.3 MG PRN ANA
  8. HEPARIN [Concomitant]
     Active Substance: HEPARIN SODIUM
     Dosage: 100 UN/ML FLUSH
     Route: 042

REACTIONS (1)
  - Pain [Unknown]
